FAERS Safety Report 6737360-2 (Version None)
Quarter: 2010Q2

REPORT INFORMATION
  Report Type: 
  Country: None (occurrence: None)
  Receive Date: 20100524
  Receipt Date: 20100514
  Transmission Date: 20101027
  Serious: Yes (Other)
  Sender: FDA-Public Use
  Company Number: US-JNJFOC-20100506604

PATIENT
  Sex: Female

DRUGS (2)
  1. CHILDREN'S TYLENOL LIQUID CHERRY [Suspect]
     Route: 048
  2. CHILDREN'S TYLENOL LIQUID CHERRY [Suspect]
     Indication: DRUG USE FOR UNKNOWN INDICATION
     Route: 048

REACTIONS (3)
  - ENZYME ABNORMALITY [None]
  - HEPATITIS C [None]
  - PRODUCT QUALITY ISSUE [None]
